FAERS Safety Report 17091432 (Version 1)
Quarter: 2019Q4

REPORT INFORMATION
  Report Type: Spontaneous
  Country: US (occurrence: US)
  Receive Date: 20191101
  Receipt Date: 20191101
  Transmission Date: 20200122
  Serious: No
  Sender: FDA-Public Use
  Company Number: None

PATIENT
  Age: 74 Year
  Sex: Female

DRUGS (1)
  1. TOBI PODHALER [Suspect]
     Active Substance: TOBRAMYCIN
     Dosage: ?          OTHER DOSE:56;OTHER ROUTE:OTHER?
     Dates: start: 201910

REACTIONS (2)
  - Throat irritation [None]
  - Wheezing [None]

NARRATIVE: CASE EVENT DATE: 20191029
